FAERS Safety Report 13511525 (Version 1)
Quarter: 2017Q2

REPORT INFORMATION
  Report Type: Spontaneous
  Country: US (occurrence: US)
  Receive Date: 20170503
  Receipt Date: 20170503
  Transmission Date: 20170830
  Serious: No
  Sender: FDA-Public Use
  Company Number: None

PATIENT
  Age: 43 Year
  Sex: Female
  Weight: 61.65 kg

DRUGS (8)
  1. ALLEGRA [Concomitant]
     Active Substance: FEXOFENADINE HYDROCHLORIDE
  2. IPATROPIUM [Concomitant]
  3. KRILL OIL [Concomitant]
     Active Substance: DIETARY SUPPLEMENT
  4. VITAMIN COMPLEX [Concomitant]
  5. VENTOLIN [Concomitant]
     Active Substance: ALBUTEROL SULFATE
  6. AMINO ACIDS [Concomitant]
     Active Substance: AMINO ACIDS
  7. VYVANSE [Suspect]
     Active Substance: LISDEXAMFETAMINE DIMESYLATE
     Indication: ATTENTION DEFICIT/HYPERACTIVITY DISORDER
     Dosage: ?          QUANTITY:1 CAPSULE(S);?
     Route: 048
     Dates: start: 20150202, end: 20170424
  8. NASONEX [Concomitant]
     Active Substance: MOMETASONE FUROATE

REACTIONS (2)
  - Hypertension [None]
  - Heart rate increased [None]

NARRATIVE: CASE EVENT DATE: 20170303
